FAERS Safety Report 6551414-5 (Version None)
Quarter: 2010Q1

REPORT INFORMATION
  Report Type: 
  Country: None (occurrence: None)
  Receive Date: 20100121
  Receipt Date: 20100107
  Transmission Date: 20100710
  Serious: Yes (Death)
  Sender: FDA-Public Use
  Company Number: 2010EU000132

PATIENT
  Age: 71 Year
  Sex: Female

DRUGS (4)
  1. PROGRAF [Suspect]
     Indication: MYASTHENIA GRAVIS
     Dosage: 2 MG MORNING + 1 MG EVENING
     Dates: start: 20090610
  2. ZOPICLONE (ZOPICLONE) [Suspect]
     Dosage: 7.5 MG, UID/QD, ORAL
     Route: 048
     Dates: start: 20090608, end: 20090610
  3. PREDNISOLON (PREDNISOLONE, PREDNISOLONE ACETATE, PREDNISOLONE SODIUM P [Concomitant]
  4. MESTINON [Concomitant]

REACTIONS (4)
  - ARRHYTHMIA [None]
  - CARDIAC ARREST [None]
  - PULMONARY OEDEMA [None]
  - SUDDEN DEATH [None]
